FAERS Safety Report 23272786 (Version 1)
Quarter: 2023Q4

REPORT INFORMATION
  Report Type: Report from Study
  Country: CA (occurrence: CA)
  Receive Date: 20231207
  Receipt Date: 20231207
  Transmission Date: 20240110
  Serious: Yes (Other)
  Sender: FDA-Public Use
  Company Number: CA-002147023-NVSC2023CA071807

PATIENT
  Age: 57 Year
  Sex: Male

DRUGS (7)
  1. COSENTYX [Suspect]
     Active Substance: SECUKINUMAB
     Indication: Psoriasis
     Dosage: 300 MG, QMO (FREQUENCY: 0, 1, 2, 3 AND 4)
     Route: 058
     Dates: start: 20230308
  2. COSENTYX [Suspect]
     Active Substance: SECUKINUMAB
     Indication: Psoriatic arthropathy
     Dosage: UNK
     Route: 065
     Dates: start: 202310
  3. ACITRETIN [Concomitant]
     Active Substance: ACITRETIN
     Indication: Product used for unknown indication
     Dosage: UNK
     Route: 065
  4. CYCLOSPORINE [Concomitant]
     Active Substance: CYCLOSPORINE
     Indication: Product used for unknown indication
     Dosage: UNK
     Route: 065
  5. BACLOFEN [Concomitant]
     Active Substance: BACLOFEN
     Indication: Product used for unknown indication
     Dosage: UNK, BID
     Route: 048
     Dates: start: 2022
  6. ROSUVASTATIN [Concomitant]
     Active Substance: ROSUVASTATIN
     Indication: Product used for unknown indication
     Dosage: UNK, QD
     Route: 048
     Dates: start: 2022
  7. ENSTILAR [Concomitant]
     Active Substance: BETAMETHASONE DIPROPIONATE\CALCIPOTRIENE HYDRATE
     Indication: Product used for unknown indication
     Dosage: UNK, PRN
     Route: 061
     Dates: start: 2023

REACTIONS (10)
  - Lower respiratory tract infection [Unknown]
  - Dyspnoea [Recovered/Resolved]
  - Dyspnoea [Unknown]
  - Nasal congestion [Recovered/Resolved]
  - Musculoskeletal stiffness [Unknown]
  - Nasal congestion [Unknown]
  - Feeling hot [Unknown]
  - Oropharyngeal discomfort [Unknown]
  - Nasopharyngitis [Unknown]
  - Headache [Unknown]

NARRATIVE: CASE EVENT DATE: 20230101
